FAERS Safety Report 22610958 (Version 2)
Quarter: 2024Q3

REPORT INFORMATION
  Report Type: Spontaneous
  Country: DE (occurrence: DE)
  Receive Date: 20230616
  Receipt Date: 20240718
  Transmission Date: 20241017
  Serious: Yes (Hospitalization, Other)
  Sender: RANBAXY
  Company Number: DE-SUN PHARMACEUTICAL INDUSTRIES LTD-2023R1-394645

PATIENT
  Age: 16 Year
  Sex: Female
  Weight: 112 kg

DRUGS (1)
  1. IBUPROFEN [Suspect]
     Active Substance: IBUPROFEN
     Indication: Dysmenorrhoea
     Dosage: 46 MILLIGRAM/KILOGRAM, QD
     Route: 065

REACTIONS (1)
  - Acute kidney injury [Recovering/Resolving]
